FAERS Safety Report 5677851-9 (Version None)
Quarter: 2008Q1

REPORT INFORMATION
  Report Type: 
  Country: None (occurrence: None)
  Receive Date: 20080318
  Receipt Date: 20080213
  Transmission Date: 20080703
  Serious: Yes (Hospitalization)
  Sender: FDA-Public Use
  Company Number: 2008US000082

PATIENT
  Age: 53 Year
  Sex: Male
  Weight: 123 kg

DRUGS (25)
  1. PROGRAF [Suspect]
     Indication: LIVER TRANSPLANT
     Dosage: SEE IMAGE
     Route: 048
     Dates: start: 20070821, end: 20070828
  2. PROGRAF [Suspect]
     Indication: LIVER TRANSPLANT
     Dosage: SEE IMAGE
     Route: 048
     Dates: start: 20070829, end: 20070831
  3. PROGRAF [Suspect]
     Indication: LIVER TRANSPLANT
     Dosage: SEE IMAGE
     Route: 048
     Dates: start: 20070831, end: 20070910
  4. PROGRAF [Suspect]
     Indication: LIVER TRANSPLANT
     Dosage: SEE IMAGE
     Route: 048
     Dates: start: 20070910, end: 20071019
  5. PROGRAF [Suspect]
     Indication: LIVER TRANSPLANT
     Dosage: SEE IMAGE
     Route: 048
     Dates: start: 20071019, end: 20071220
  6. PROGRAF [Suspect]
     Indication: LIVER TRANSPLANT
     Dosage: SEE IMAGE
     Route: 048
     Dates: start: 20071220, end: 20080105
  7. MORPHINE [Concomitant]
  8. ANTIHYPERTENSIVES [Concomitant]
  9. MYFORTIC [Concomitant]
  10. LASIX [Concomitant]
  11. MULTI-VITAMIN [Concomitant]
  12. ATENOLOL [Concomitant]
  13. CARDURA [Concomitant]
  14. FLUCONAZOLE [Concomitant]
  15. FERROUS SULFATE TAB [Concomitant]
  16. DOCUSATE (DOCUSATE) [Concomitant]
  17. VALGANCICLOVIR HCL [Concomitant]
  18. SEPTRA [Concomitant]
  19. CALCIUM CARBONATE [Concomitant]
  20. SEPTRA [Concomitant]
  21. CALCIUM CARBONATE [Concomitant]
  22. VITAMIN D [Concomitant]
  23. PROTONIX [Concomitant]
  24. INSULIN (INSULIN HUMAN) [Concomitant]
  25. ATG (ANTITHYMOCYTE IMMUNOGLOBULIN) [Concomitant]

REACTIONS (6)
  - ABDOMINAL DISTENSION [None]
  - BLADDER SPASM [None]
  - ECCHYMOSIS [None]
  - HAEMATURIA [None]
  - MICTURITION URGENCY [None]
  - RETROPERITONEAL HAEMORRHAGE [None]
